FAERS Safety Report 6058244-1 (Version None)
Quarter: 2009Q1

REPORT INFORMATION
  Report Type: 
  Country: None (occurrence: None)
  Receive Date: 20090130
  Receipt Date: 20090126
  Transmission Date: 20090719
  Serious: Yes (Hospitalization)
  Sender: FDA-Public Use
  Company Number: US-WYE-H06895008

PATIENT
  Sex: Female
  Weight: 68.1 kg

DRUGS (2)
  1. RELISTOR [Suspect]
     Indication: CONSTIPATION
     Dosage: 12 MG EVERY 1 TOT
     Route: 058
     Dates: start: 20081114, end: 20081114
  2. MORPHINE [Concomitant]
     Dosage: UNSPECIFIED
     Route: 065

REACTIONS (1)
  - DUODENAL ULCER PERFORATION [None]
